FAERS Safety Report 20659343 (Version 1)
Quarter: 2022Q1

REPORT INFORMATION
  Report Type: Spontaneous
  Country: US (occurrence: US)
  Receive Date: 20220331
  Receipt Date: 20220331
  Transmission Date: 20220423
  Serious: Yes (Other)
  Sender: FDA-Public Use
  Company Number: US-TEVA-2022-US-2021614

PATIENT
  Age: 62 Year
  Sex: Male

DRUGS (1)
  1. AUSTEDO [Suspect]
     Active Substance: DEUTETRABENAZINE
     Indication: Tardive dyskinesia
     Dosage: 18 MILLIGRAM DAILY;
     Route: 065

REACTIONS (6)
  - Hallucination [Recovering/Resolving]
  - Nasal congestion [Unknown]
  - Vision blurred [Unknown]
  - Dry mouth [Unknown]
  - Insomnia [Unknown]
  - Fatigue [Unknown]
